FAERS Safety Report 5916012-2 (Version None)
Quarter: 2008Q4

REPORT INFORMATION
  Report Type: 
  Country: None (occurrence: None)
  Receive Date: 20081013
  Receipt Date: 20080929
  Transmission Date: 20090506
  Serious: Yes (Hospitalization)
  Sender: FDA-Public Use
  Company Number: FR-JNJFOC-20081000064

PATIENT
  Age: 66 Year
  Sex: Male

DRUGS (3)
  1. REMICADE [Suspect]
     Route: 042
  2. REMICADE [Suspect]
     Indication: PSORIATIC ARTHROPATHY
     Route: 042
  3. KARDEGIC [Suspect]
     Indication: PSORIATIC ARTHROPATHY
     Route: 048

REACTIONS (2)
  - RENAL FAILURE ACUTE [None]
  - SARCOIDOSIS [None]
